FAERS Safety Report 21710422 (Version 3)
Quarter: 2023Q2

REPORT INFORMATION
  Report Type: Report from Study
  Country: DE (occurrence: DE)
  Receive Date: 20221211
  Receipt Date: 20230413
  Transmission Date: 20230721
  Serious: Yes (Other)
  Sender: FDA-Public Use
  Company Number: DE-TAKEDA-2022TUS094327

PATIENT
  Age: 68 Year
  Sex: Female
  Weight: 76.998 kg

DRUGS (2)
  1. VEDOLIZUMAB [Suspect]
     Active Substance: VEDOLIZUMAB
     Indication: Product used for unknown indication
     Dosage: 300 MILLIGRAM
     Route: 042
     Dates: start: 20210510
  2. VEDOLIZUMAB [Suspect]
     Active Substance: VEDOLIZUMAB
     Indication: Product used for unknown indication
     Dosage: 108 MILLIGRAM
     Route: 058
     Dates: start: 20220110

REACTIONS (3)
  - Portal hypertensive gastropathy [Recovered/Resolved with Sequelae]
  - Varices oesophageal [Recovered/Resolved with Sequelae]
  - Fatigue [Unknown]

NARRATIVE: CASE EVENT DATE: 20220506
